FAERS Safety Report 5102753-6 (Version None)
Quarter: 2006Q3

REPORT INFORMATION
  Report Type: 
  Country: None (occurrence: None)
  Receive Date: 20060907
  Receipt Date: 20060822
  Transmission Date: 20061208
  Serious: Yes (Life-Threatening, Disabling)
  Sender: FDA-Public Use
  Company Number: ACO_0260_2006

PATIENT
  Age: 85 Year
  Sex: Female

DRUGS (5)
  1. TIZANIDINE HCL [Suspect]
     Indication: MUSCLE SPASMS
     Dosage: 4 MG BID PO
     Route: 048
     Dates: start: 20020301, end: 20060701
  2. CITALOPRAM HYDROBROMIDE [Suspect]
     Indication: DEPRESSION
     Dosage: DF PO
     Route: 048
     Dates: start: 20060301, end: 20060701
  3. ASPIRIN [Concomitant]
  4. DIPYRIDAMOLE [Concomitant]
  5. SIMVASTATIN [Concomitant]

REACTIONS (3)
  - DRUG INTERACTION [None]
  - HYPOKALAEMIA [None]
  - ILEUS PARALYTIC [None]
